FAERS Safety Report 4636612-X (Version None)
Quarter: 2005Q2

REPORT INFORMATION
  Report Type: 
  Country: None (occurrence: None)
  Receive Date: 20050414
  Receipt Date: 20050404
  Transmission Date: 20051028
  Serious: Yes (Hospitalization)
  Sender: FDA-Public Use
  Company Number: 05P-028-0292539-00

PATIENT
  Age: 66 Year
  Sex: Female

DRUGS (29)
  1. HUMIRA [Suspect]
     Indication: RHEUMATOID ARTHRITIS
     Dosage: 40 MG, 1 IN 10 D, SUBCUTANEOUS
     Route: 058
     Dates: start: 20041001
  2. LORAZEPAM [Concomitant]
  3. METHOTREXATE [Concomitant]
  4. IPRATROPIUM BROMIDE [Concomitant]
  5. PREDNISONE [Concomitant]
  6. ACETYL SALICYLIC ACID USP BAT [Concomitant]
  7. CITALOPRAM HYDROBROMIDE [Concomitant]
  8. CLOPIDOGREL [Concomitant]
  9. GABAPENTIN [Concomitant]
  10. METOPROLOL TARTRATE [Concomitant]
  11. ERGOCALCIFEROL [Concomitant]
  12. FOLIC ACID [Concomitant]
  13. PANTOLAC [Concomitant]
  14. RAMIPRIL [Concomitant]
  15. CALCIUM GLUCONATE [Concomitant]
  16. NITROGLYCERIN [Concomitant]
  17. PRVASTATIN [Concomitant]
  18. FLUTICASONE PROPIONATE [Concomitant]
  19. AMLODIPINE [Concomitant]
  20. AMLODIPINE BESYLATE [Concomitant]
  21. POTASSIUM CHLORATE [Concomitant]
  22. DOCUSATE SODUM [Concomitant]
  23. SENNA FRUIT [Concomitant]
  24. RISEDRONATE SODUM [Concomitant]
  25. METFORMIN [Concomitant]
  26. HYDROMORPHONE HYDROCHLORIDE [Concomitant]
  27. FUROSEMIDE [Concomitant]
  28. MAGNESIUM [Concomitant]
  29. DIMENHYDRINATE [Concomitant]

REACTIONS (9)
  - ABDOMINAL PAIN [None]
  - FEELING COLD [None]
  - GLOSSODYNIA [None]
  - HERNIA [None]
  - MUSCULOSKELETAL DISCOMFORT [None]
  - NASOPHARYNGITIS [None]
  - ORAL PAIN [None]
  - PRURITUS GENERALISED [None]
  - SPINAL DISORDER [None]
